FAERS Safety Report 4663436-X (Version None)
Quarter: 2005Q2

REPORT INFORMATION
  Report Type: 
  Country: None (occurrence: None)
  Receive Date: 20050517
  Receipt Date: 20050321
  Transmission Date: 20051028
  Serious: Yes (Other)
  Sender: FDA-Public Use
  Company Number: 200512280US

PATIENT
  Sex: Male
  Weight: 61.4 kg

DRUGS (8)
  1. LANTUS [Suspect]
     Indication: DIABETES MELLITUS
     Dosage: DOSE UNIT: UNITS
     Dates: start: 20020606
  2. OPTICLIK (INSULIN INJECTION PEN) [Suspect]
     Dates: start: 20050101
  3. NOVOLOG [Concomitant]
     Dosage: DOSE: UNK
  4. COUMADIN [Concomitant]
  5. PRAVACHOL [Concomitant]
  6. AVAPRO [Concomitant]
  7. CALCIUM GLUCONATE [Concomitant]
  8. VITAMINS NOS [Concomitant]

REACTIONS (5)
  - CONFUSIONAL STATE [None]
  - DEVICE FAILURE [None]
  - HYPOGLYCAEMIA [None]
  - INCORRECT DOSE ADMINISTERED [None]
  - PHARMACEUTICAL PRODUCT COMPLAINT [None]
